FAERS Safety Report 16529516 (Version 1)
Quarter: 2019Q3

REPORT INFORMATION
  Report Type: Spontaneous
  Country: US (occurrence: US)
  Receive Date: 20190703
  Receipt Date: 20190703
  Transmission Date: 20191004
  Serious: Yes (Other)
  Sender: FDA-Public Use
  Company Number: US-PURDUE PHARMA-USA-2019-0146961

PATIENT

DRUGS (1)
  1. BUPRENORPHINE. [Suspect]
     Active Substance: BUPRENORPHINE
     Indication: DEPENDENCE
     Route: 060

REACTIONS (3)
  - Incorrect dose administered [Unknown]
  - Drug ineffective [Unknown]
  - Wrong technique in product usage process [Unknown]
